FAERS Safety Report 4481297-9 (Version None)
Quarter: 2004Q4

REPORT INFORMATION
  Report Type: 
  Country: None (occurrence: None)
  Receive Date: 20040923
  Receipt Date: 20040805
  Transmission Date: 20050328
  Serious: No
  Sender: FDA-Public Use
  Company Number: USA030639360

PATIENT
  Age: 77 Year
  Sex: Female

DRUGS (11)
  1. FORTEO [Suspect]
     Indication: BONE DENSITY DECREASED
     Dosage: 20 UG DAY
     Dates: start: 20030610
  2. CALCIUM [Concomitant]
  3. ROCALTROL [Concomitant]
  4. ALEVE [Concomitant]
  5. CYTOTEC [Concomitant]
  6. ALTACE [Concomitant]
  7. HYDROCHLOROTHIAZIDE [Concomitant]
  8. CLARINEX [Concomitant]
  9. ZOLOFT [Concomitant]
  10. COSOPT [Concomitant]
  11. REMICADE [Concomitant]

REACTIONS (8)
  - ASTHENIA [None]
  - BLOOD PRESSURE DECREASED [None]
  - DIZZINESS [None]
  - FALL [None]
  - HEART RATE INCREASED [None]
  - MUSCLE CRAMP [None]
  - MYALGIA [None]
  - NAUSEA [None]
